FAERS Safety Report 24755912 (Version 1)
Quarter: 2024Q4

REPORT INFORMATION
  Report Type: Spontaneous
  Country: CN (occurrence: CN)
  Receive Date: 20241219
  Receipt Date: 20241219
  Transmission Date: 20250115
  Serious: Yes (Hospitalization)
  Sender: ELI LILLY AND COMPANY
  Company Number: CN-Merck Healthcare KGaA-2024066159

PATIENT
  Age: 63 Year
  Sex: Male
  Weight: 53 kg

DRUGS (4)
  1. ERBITUX [Suspect]
     Active Substance: CETUXIMAB
     Indication: Laryngeal cancer metastatic
     Dosage: .6 G, UNK
     Route: 041
     Dates: start: 20241125, end: 20241125
  2. SINTILIMAB [Suspect]
     Active Substance: SINTILIMAB
     Indication: Laryngeal cancer metastatic
     Dosage: UNK UNK, UNKNOWN
     Route: 041
     Dates: start: 20241125, end: 20241125
  3. DOCETAXEL [Suspect]
     Active Substance: DOCETAXEL
     Indication: Laryngeal cancer metastatic
     Dosage: UNK UNK, UNKNOWN
     Route: 041
     Dates: start: 20241126, end: 20241126
  4. CISPLATIN [Suspect]
     Active Substance: CISPLATIN
     Indication: Laryngeal cancer metastatic
     Dosage: UNK UNK, UNKNOWN
     Route: 041
     Dates: start: 20241126, end: 20241128

REACTIONS (2)
  - White blood cell count decreased [Recovering/Resolving]
  - Neutrophil count decreased [Recovering/Resolving]

NARRATIVE: CASE EVENT DATE: 20241202
